FAERS Safety Report 6795558-1 (Version None)
Quarter: 2010Q2

REPORT INFORMATION
  Report Type: 
  Country: None (occurrence: None)
  Receive Date: 20100625
  Receipt Date: 20100621
  Transmission Date: 20101027
  Serious: Yes (Hospitalization)
  Sender: FDA-Public Use
  Company Number: US-WYE-H15800610

PATIENT
  Age: 63 Year
  Sex: Male

DRUGS (2)
  1. TORISEL [Suspect]
     Indication: RENAL CELL CARCINOMA
     Dosage: 25 MG, DAYS 1, 8, 15, AND 22
     Route: 042
     Dates: start: 20100112, end: 20100511
  2. BEVACIZUMAB [Suspect]
     Indication: RENAL CELL CARCINOMA
     Dosage: 10 MG/KG, DAYS 1 AND 15
     Route: 042
     Dates: start: 20100112

REACTIONS (5)
  - ABDOMINAL ABSCESS [None]
  - DECREASED APPETITE [None]
  - DEHYDRATION [None]
  - OPPORTUNISTIC INFECTION [None]
  - STAPHYLOCOCCAL INFECTION [None]
